FAERS Safety Report 6119418-4 (Version None)
Quarter: 2009Q1

REPORT INFORMATION
  Report Type: 
  Country: None (occurrence: None)
  Receive Date: 20090316
  Receipt Date: 20090306
  Transmission Date: 20090719
  Serious: Yes (Death, Hospitalization)
  Sender: FDA-Public Use
  Company Number: A0772840A

PATIENT
  Age: 80 Year
  Sex: Female
  Weight: 84.1 kg

DRUGS (9)
  1. AVANDIA [Suspect]
     Indication: DIABETES MELLITUS
     Route: 048
     Dates: start: 20030826, end: 20040909
  2. GLYBURIDE [Concomitant]
  3. GLUCOTROL [Concomitant]
  4. COREG [Concomitant]
  5. TRIAMTERENE AND HYDROCHLOROTHIAZIDE [Concomitant]
  6. RISPERDAL [Concomitant]
  7. LISINOPRIL [Concomitant]
  8. SUPPLEMENT [Concomitant]
  9. KLOR-CON [Concomitant]

REACTIONS (2)
  - CARDIAC ARREST [None]
  - CARDIAC FAILURE CONGESTIVE [None]
